FAERS Safety Report 21799363 (Version 1)
Quarter: 2022Q4

REPORT INFORMATION
  Report Type: Spontaneous
  Country: US (occurrence: None)
  Receive Date: 20221229
  Receipt Date: 20221229
  Transmission Date: 20230113
  Serious: Yes (Hospitalization)
  Sender: FDA-Public Use
  Company Number: None

PATIENT
  Sex: Female

DRUGS (9)
  1. ORENCIA [Suspect]
     Active Substance: ABATACEPT
     Indication: Asthma
     Dosage: 125 MG/ML SUBCUTANEOUS??ADMINISTER 1 ML SUBCUTANEOUSLY ONCE WEEKLY?
     Route: 058
     Dates: start: 20220818
  2. ATORVASTATIN [Concomitant]
     Active Substance: ATORVASTATIN
  3. FLUOXETINE CAP [Concomitant]
  4. GABAPENTIN [Concomitant]
     Active Substance: GABAPENTIN
  5. HYDROCO/APAP TAB [Concomitant]
  6. PREDNISONE [Concomitant]
     Active Substance: PREDNISONE
  7. PROTONIX TAB [Concomitant]
  8. VENTOLIN HFA AER [Concomitant]
  9. ZOLIPIDEM TAB [Concomitant]

REACTIONS (1)
  - Anaphylactic shock [None]

NARRATIVE: CASE EVENT DATE: 20221201
